FAERS Safety Report 10924274 (Version 1)
Quarter: 2015Q1

REPORT INFORMATION
  Report Type: Spontaneous
  Country: DE (occurrence: DE)
  Receive Date: 20150318
  Receipt Date: 20150318
  Transmission Date: 20150721
  Serious: Yes (Life-Threatening, Hospitalization)
  Sender: FDA-Public Use
  Company Number: DE-RANBAXY-2015RR-94248

PATIENT
  Age: 52 Year
  Sex: Female

DRUGS (2)
  1. KATADOLON S LONG [Suspect]
     Active Substance: FLUPIRTINE
     Indication: NECK PAIN
     Dosage: A TOTOLA 10 TABLETS WERE TAKEN
     Route: 048
     Dates: start: 20141220, end: 20150108
  2. PARACETAMOL [Suspect]
     Active Substance: ACETAMINOPHEN
     Indication: HEADACHE
     Dosage: ON SINGLE DAY (FOR HEADACHE) MAX 3 TABLETS
     Route: 048
     Dates: start: 20150101, end: 20150108

REACTIONS (1)
  - Hepatic failure [Recovered/Resolved]

NARRATIVE: CASE EVENT DATE: 20150109
